FAERS Safety Report 6439824-8 (Version None)
Quarter: 2009Q4

REPORT INFORMATION
  Report Type: 
  Country: None (occurrence: None)
  Receive Date: 20091112
  Receipt Date: 20091112
  Transmission Date: 20100525
  Serious: Yes (Other)
  Sender: FDA-Public Use
  Company Number: None

PATIENT
  Age: 29 Year
  Sex: Male
  Weight: 92.5338 kg

DRUGS (1)
  1. CARBOPLATIN [Suspect]
     Indication: TESTIS CANCER
     Dosage: AUC 7  1 (ONCE) IVPB
     Route: 040
     Dates: start: 20090807

REACTIONS (1)
  - PSYCHOTIC DISORDER [None]
